FAERS Safety Report 10185410 (Version 1)
Quarter: 2014Q2

REPORT INFORMATION
  Report Type: Spontaneous
  Country: CR (occurrence: CR)
  Receive Date: 20140521
  Receipt Date: 20140521
  Transmission Date: 20141212
  Serious: Yes (Death)
  Sender: FDA-Public Use
  Company Number: PHHY2014CR059963

PATIENT
  Age: 49 Year
  Sex: Female

DRUGS (7)
  1. ZOLEDRONIC ACID [Suspect]
     Indication: NEURALGIA
     Dosage: 2 MG, IN 30 MINS
     Dates: start: 20130315, end: 20130722
  2. MORPHINE [Concomitant]
     Dosage: 80 MG,
     Dates: start: 20130315, end: 20130722
  3. GABAPENTIN [Concomitant]
     Dosage: 300 MG
     Route: 048
     Dates: start: 20130315, end: 20130722
  4. IRON [Concomitant]
  5. ATENOLOL [Concomitant]
  6. IRBESARTAN [Concomitant]
  7. AMLODIPINE [Concomitant]

REACTIONS (1)
  - Neoplasm malignant [Fatal]
